FAERS Safety Report 9771713 (Version 1)
Quarter: 2013Q4

REPORT INFORMATION
  Report Type: Spontaneous
  Country: ID (occurrence: ID)
  Receive Date: 20131219
  Receipt Date: 20131219
  Transmission Date: 20140711
  Serious: Yes (Hospitalization)
  Sender: FDA-Public Use
  Company Number: ID-ROCHE-1321394

PATIENT
  Age: 57 Year
  Sex: Female

DRUGS (1)
  1. AVASTIN [Suspect]
     Indication: OVARIAN CANCER
     Route: 065

REACTIONS (3)
  - Diarrhoea [Unknown]
  - General physical health deterioration [Unknown]
  - Off label use [Unknown]
